FAERS Safety Report 7660484-2 (Version None)
Quarter: 2011Q3

REPORT INFORMATION
  Report Type: 
  Country: None (occurrence: None)
  Receive Date: 20110805
  Receipt Date: 20110721
  Transmission Date: 20111222
  Serious: Yes (Other)
  Sender: FDA-Public Use
  Company Number: CA-AMGEN-USACT2011035069

PATIENT
  Age: 58 Year
  Sex: Male

DRUGS (10)
  1. METHOTREXATE [Suspect]
     Dosage: UNK
  2. PLAQUENIL [Suspect]
     Dosage: UNK
  3. HUMIRA [Suspect]
     Dosage: UNK
  4. PREDNISONE [Suspect]
     Dosage: 5 MG, UNK
  5. GOLD [Concomitant]
     Dosage: UNK
  6. ENBREL [Suspect]
     Indication: PRODUCT USED FOR UNKNOWN INDICATION
     Dosage: UNK, WEDNESDAY IN THE EVENING
  7. NAPROXEN SODIUM [Suspect]
     Dosage: UNK
  8. REMICADE [Suspect]
     Dosage: UNK
  9. CELEBREX [Suspect]
     Dosage: UNK
  10. ARAVA [Suspect]
     Dosage: UNK

REACTIONS (5)
  - PNEUMONIA [None]
  - ABDOMINAL DISCOMFORT [None]
  - MUSCULAR WEAKNESS [None]
  - GAIT DISTURBANCE [None]
  - INFECTION [None]
